FAERS Safety Report 5028156-0 (Version None)
Quarter: 2006Q2

REPORT INFORMATION
  Report Type: 
  Country: None (occurrence: None)
  Receive Date: 20060613
  Receipt Date: 20060606
  Transmission Date: 20061013
  Serious: Yes (Hospitalization)
  Sender: FDA-Public Use
  Company Number: 2006-01391

PATIENT
  Age: 67 Year
  Sex: Female

DRUGS (2)
  1. VELCADE [Suspect]
     Indication: MULTIPLE MYELOMA
  2. DOXIL [Suspect]
     Indication: MULTIPLE MYELOMA

REACTIONS (1)
  - GENERAL PHYSICAL HEALTH DETERIORATION [None]
